FAERS Safety Report 4508312-8 (Version None)
Quarter: 2004Q4

REPORT INFORMATION
  Report Type: 
  Country: None (occurrence: None)
  Receive Date: 20041123
  Receipt Date: 20040105
  Transmission Date: 20050328
  Serious: No
  Sender: FDA-Public Use
  Company Number: US-GLAXOSMITHKLINE-A0491306A

PATIENT
  Age: 52 Year
  Sex: Female

DRUGS (4)
  1. WELLBUTRIN SR [Suspect]
     Dosage: 150MG PER DAY
     Route: 048
     Dates: start: 20030301, end: 20031101
  2. LIPITOR [Concomitant]
  3. PREMARIN [Concomitant]
  4. CALCIUM [Concomitant]

REACTIONS (1)
  - HYPERTENSION [None]
